FAERS Safety Report 10219665 (Version 3)
Quarter: 2014Q3

REPORT INFORMATION
  Report Type: Spontaneous
  Country: US (occurrence: US)
  Receive Date: 20140605
  Receipt Date: 20140904
  Transmission Date: 20150326
  Serious: Yes (Other)
  Sender: FDA-Public Use
  Company Number: US-TEVA-477953USA

PATIENT
  Age: 57 Year
  Sex: Female

DRUGS (7)
  1. VENTOLIN [Concomitant]
     Active Substance: ALBUTEROL SULFATE
     Indication: DYSPNOEA
     Dosage: QID
  2. XALATAN [Concomitant]
     Active Substance: LATANOPROST
     Dosage: 0.005%/OPTH SOLUTION/2-5ML/BOTH EYES
     Route: 047
  3. COZAAR [Concomitant]
     Active Substance: LOSARTAN POTASSIUM
     Dosage: 50 MILLIGRAM DAILY;
  4. NEXIUM [Concomitant]
     Active Substance: ESOMEPRAZOLE MAGNESIUM
     Dosage: 40 MILLIGRAM DAILY;
     Route: 048
  5. RITUXAN [Suspect]
     Active Substance: RITUXIMAB
     Dosage: FIRST CYCLE OF CHEMO
     Dates: start: 20130304, end: 20130307
  6. SUDAFED 12 HOUR [Concomitant]
     Active Substance: PSEUDOEPHEDRINE HYDROCHLORIDE
     Indication: SINUS CONGESTION
     Route: 048
  7. TREANDA [Suspect]
     Active Substance: BENDAMUSTINE HYDROCHLORIDE
     Indication: PRODUCT USED FOR UNKNOWN INDICATION
     Dosage: FIRST CYCLE OF CHEMO
     Dates: start: 20130304, end: 20130307

REACTIONS (5)
  - Rash [Unknown]
  - Erythema [Unknown]
  - Rash maculo-papular [Unknown]
  - Skin reaction [Unknown]
  - Hypersensitivity vasculitis [Unknown]

NARRATIVE: CASE EVENT DATE: 20140313
